FAERS Safety Report 13122202 (Version 2)
Quarter: 2017Q1

REPORT INFORMATION
  Report Type: Spontaneous
  Country: TR (occurrence: TR)
  Receive Date: 20170117
  Receipt Date: 20170118
  Transmission Date: 20170428
  Serious: Yes (Life-Threatening, Hospitalization)
  Sender: FDA-Public Use
  Company Number: TR-TEVA-728041ISR

PATIENT
  Age: 45 Year
  Sex: Female

DRUGS (5)
  1. ARIPIPRAZOLE. [Suspect]
     Active Substance: ARIPIPRAZOLE
     Indication: SUICIDE ATTEMPT
     Dosage: 45MG
     Route: 048
  2. AMISULPRIDE [Suspect]
     Active Substance: AMISULPRIDE
     Indication: SUICIDE ATTEMPT
     Dosage: 28G
     Route: 048
  3. VALSARTAN. [Suspect]
     Active Substance: VALSARTAN
     Indication: SUICIDE ATTEMPT
     Dosage: 2240MG
     Route: 048
  4. DIAZEPAM. [Suspect]
     Active Substance: DIAZEPAM
     Indication: SUICIDE ATTEMPT
     Dosage: 250MG
     Route: 048
  5. PALIPERIDONE. [Suspect]
     Active Substance: PALIPERIDONE
     Indication: SUICIDE ATTEMPT
     Dosage: 21MG
     Route: 048

REACTIONS (5)
  - Respiratory depression [Recovered/Resolved]
  - Suicide attempt [Recovered/Resolved]
  - Cardiotoxicity [Recovered/Resolved]
  - Depressed level of consciousness [Recovered/Resolved]
  - Overdose [Unknown]
